FAERS Safety Report 8534611-9 (Version None)
Quarter: 2012Q3

REPORT INFORMATION
  Report Type: 
  Country: None (occurrence: None)
  Receive Date: 20120724
  Receipt Date: 20120717
  Transmission Date: 20120928
  Serious: Yes (Death)
  Sender: FDA-Public Use
  Company Number: AT-UCBSA-062052

PATIENT
  Sex: Female

DRUGS (4)
  1. CIMZIA [Suspect]
     Indication: RHEUMATOID ARTHRITIS
     Route: 058
     Dates: end: 20120407
  2. HUMIRA [Concomitant]
     Indication: RHEUMATOID ARTHRITIS
     Dates: start: 20100101
  3. CIMZIA [Suspect]
     Route: 058
  4. ENBREL [Concomitant]
     Indication: RHEUMATOID ARTHRITIS

REACTIONS (2)
  - INCORRECT DOSE ADMINISTERED [None]
  - CENTRAL NERVOUS SYSTEM LYMPHOMA [None]
